FAERS Safety Report 6161032-9 (Version None)
Quarter: 2009Q2

REPORT INFORMATION
  Report Type: 
  Country: None (occurrence: None)
  Receive Date: 20090420
  Receipt Date: 20090408
  Transmission Date: 20091009
  Serious: Yes (Hospitalization)
  Sender: FDA-Public Use
  Company Number: CH-PFIZER INC-2009195065

PATIENT

DRUGS (5)
  1. SUTENT [Suspect]
     Indication: HEPATIC NEOPLASM MALIGNANT NON-RESECTABLE
     Dosage: 37.5 MG, 1X/DAY
     Route: 048
     Dates: start: 20080807
  2. SORAFENIB [Concomitant]
     Dosage: 800 MG, 1X/DAY
     Route: 048
     Dates: start: 20090301
  3. PERINDOPRIL [Concomitant]
     Dosage: 4 MG, 1X/DAY
     Route: 048
     Dates: start: 20080701
  4. CITALOPRAM [Concomitant]
     Dosage: 20 MG, 1X/DAY
     Route: 048
  5. DALTEPARIN [Concomitant]
     Dosage: 5000 IU, 1X/DAY
     Route: 058
     Dates: start: 20080731

REACTIONS (1)
  - CONDUCTION DISORDER [None]
